FAERS Safety Report 7069948-6 (Version None)
Quarter: 2010Q4

REPORT INFORMATION
  Report Type: 
  Country: None (occurrence: None)
  Receive Date: 20101028
  Receipt Date: 20100730
  Transmission Date: 20110411
  Serious: No
  Sender: FDA-Public Use
  Company Number: US-WYE-H16695410

PATIENT
  Sex: Male

DRUGS (1)
  1. EFFEXOR [Suspect]
     Dosage: ^75MG + 100MG^ UNSPECIFIED FREQUENCY
     Route: 048

REACTIONS (2)
  - ANGER [None]
  - DRUG EFFECT DECREASED [None]
